FAERS Safety Report 10644370 (Version 1)
Quarter: 2014Q4

REPORT INFORMATION
  Report Type: Spontaneous
  Country: GB (occurrence: GB)
  Receive Date: 20141210
  Receipt Date: 20141210
  Transmission Date: 20150529
  Serious: Yes (Hospitalization)
  Sender: FDA-Public Use
  Company Number: GB-SA-2014SA168206

PATIENT
  Age: 14 Month
  Sex: Male

DRUGS (1)
  1. MYOZYME [Suspect]
     Active Substance: ALGLUCOSIDASE ALFA
     Route: 042

REACTIONS (2)
  - Postoperative wound infection [Not Recovered/Not Resolved]
  - Gastrostomy [Unknown]

NARRATIVE: CASE EVENT DATE: 20141130
